FAERS Safety Report 10358761 (Version 1)
Quarter: 2014Q3

REPORT INFORMATION
  Report Type: Spontaneous
  Country: FR (occurrence: FR)
  Receive Date: 20140804
  Receipt Date: 20140804
  Transmission Date: 20150326
  Serious: Yes (Other)
  Sender: FDA-Public Use
  Company Number: FR-ROCHE-1441841

PATIENT
  Age: 62 Year
  Sex: Female

DRUGS (10)
  1. AVASTIN [Suspect]
     Active Substance: BEVACIZUMAB
     Indication: BREAST CANCER
     Dosage: 10 MG/KG WEEKLY 12 COURSES; 15 MG/KG 7 COURSES
     Route: 042
     Dates: start: 20091026, end: 20100826
  2. TAMOXIFENE [Suspect]
     Active Substance: TAMOXIFEN
     Indication: BREAST CANCER
     Route: 048
     Dates: start: 20120919, end: 20121009
  3. ENDOXAN [Suspect]
     Active Substance: CYCLOPHOSPHAMIDE
     Indication: BREAST CANCER
     Route: 048
     Dates: start: 20131010, end: 20131107
  4. DOCETAXEL HOSPIRA [Suspect]
     Active Substance: DOCETAXEL
     Indication: BREAST CANCER
     Dosage: 5.7143 MG; 6 COURSES
     Route: 042
     Dates: start: 20121126, end: 20130313
  5. XELODA [Suspect]
     Active Substance: CAPECITABINE
     Indication: BREAST CANCER
     Dosage: 2000 MG A DAY ON DAY 14 AND DAY 21
     Route: 065
     Dates: start: 20131127, end: 20140130
  6. ENDOXAN [Suspect]
     Active Substance: CYCLOPHOSPHAMIDE
     Dosage: 6 COURSES
     Route: 042
     Dates: start: 20120425, end: 20120816
  7. XGEVA [Suspect]
     Active Substance: DENOSUMAB
     Indication: METASTASES TO BONE
     Dosage: ADMINITRATION IN JAN-2014 AND FEB-2014: 4 COURSES
     Route: 058
     Dates: start: 20130717, end: 20131010
  8. PACLITAXEL. [Suspect]
     Active Substance: PACLITAXEL
     Indication: BREAST CANCER
     Dosage: 19.2857 MG; 13 COURSES
     Route: 042
     Dates: start: 20130410, end: 20130904
  9. EPIRUBICIN [Suspect]
     Active Substance: EPIRUBICIN
     Indication: BREAST CANCER
     Dosage: 6 COURSES
     Route: 042
     Dates: start: 20120425, end: 20120816
  10. PACLITAXEL. [Suspect]
     Active Substance: PACLITAXEL
     Dosage: 12 COURSES
     Route: 042
     Dates: start: 20091026, end: 20100407

REACTIONS (3)
  - Hepatic cirrhosis [Not Recovered/Not Resolved]
  - Portal hypertension [Not Recovered/Not Resolved]
  - Varices oesophageal [Not Recovered/Not Resolved]

NARRATIVE: CASE EVENT DATE: 201401
